FAERS Safety Report 7745128-3 (Version None)
Quarter: 2011Q3

REPORT INFORMATION
  Report Type: 
  Country: None (occurrence: None)
  Receive Date: 20110913
  Receipt Date: 20110906
  Transmission Date: 20111222
  Serious: Yes (Hospitalization)
  Sender: FDA-Public Use
  Company Number: US-AMGEN-USASP2011045612

PATIENT
  Age: 72 Year
  Sex: Male

DRUGS (1)
  1. ENBREL [Suspect]
     Indication: RHEUMATOID ARTHRITIS
     Dosage: 50 MG, QWK
     Dates: start: 20060101

REACTIONS (7)
  - ADHESION [None]
  - HEMIPLEGIA [None]
  - PAIN [None]
  - CEREBROVASCULAR ACCIDENT [None]
  - PANCREATITIS [None]
  - INTERVERTEBRAL DISC DISORDER [None]
  - PNEUMONIA [None]
